FAERS Safety Report 23234156 (Version 1)
Quarter: 2023Q4

REPORT INFORMATION
  Report Type: Spontaneous
  Country: AT (occurrence: AT)
  Receive Date: 20231128
  Receipt Date: 20231128
  Transmission Date: 20240110
  Serious: Yes (Hospitalization)
  Sender: FDA-Public Use
  Company Number: AT-BRACCO-2023AT05995

PATIENT
  Age: 60 Year
  Sex: Male

DRUGS (1)
  1. PROHANCE [Suspect]
     Active Substance: GADOTERIDOL
     Indication: Magnetic resonance imaging prostate
     Dosage: 50 ML, SINGLE
     Route: 042

REACTIONS (4)
  - Hyperhidrosis [Recovered/Resolved]
  - Flushing [Recovered/Resolved]
  - Dizziness [Recovered/Resolved]
  - Autonomic nervous system imbalance [Recovered/Resolved]

NARRATIVE: CASE EVENT DATE: 20231115
